FAERS Safety Report 15144863 (Version 1)
Quarter: 2018Q3

REPORT INFORMATION
  Report Type: Spontaneous
  Country: CA (occurrence: CA)
  Receive Date: 20180713
  Receipt Date: 20180713
  Transmission Date: 20181010
  Serious: Yes (Other)
  Sender: FDA-Public Use
  Company Number: CA-PFIZER INC-2018279618

PATIENT

DRUGS (1)
  1. SULFASALAZINE. [Suspect]
     Active Substance: SULFASALAZINE
     Dosage: UNK

REACTIONS (8)
  - Fall [Unknown]
  - Osteopenia [Unknown]
  - Mobility decreased [Unknown]
  - Hip fracture [Unknown]
  - Vomiting [Unknown]
  - Osteoporosis [Unknown]
  - Humerus fracture [Unknown]
  - Bursitis [Unknown]

NARRATIVE: CASE EVENT DATE: 2015
